FAERS Safety Report 9505776 (Version 1)
Quarter: 2013Q1

REPORT INFORMATION
  Report Type: Spontaneous
  Country: US (occurrence: None)
  Receive Date: 20130225
  Receipt Date: 20130225
  Transmission Date: 20140127
  Serious: Yes (Hospitalization)
  Sender: FDA-Public Use
  Company Number: 2012-150

PATIENT
  Age: 34 Year
  Sex: Male

DRUGS (4)
  1. PRIALT [Suspect]
     Indication: BACK PAIN
     Dosage: ONCE A HOUR
     Route: 037
  2. LITHIUM [Concomitant]
  3. TRILEPTAL (OXCARBAZEPINE) [Concomitant]
  4. ZYPREXA (LANZAPINE) [Concomitant]

REACTIONS (3)
  - Delirium [None]
  - Amnesia [None]
  - Confusional state [None]
